FAERS Safety Report 24402163 (Version 2)
Quarter: 2025Q1

REPORT INFORMATION
  Report Type: Spontaneous
  Country: US (occurrence: US)
  Receive Date: 20241007
  Receipt Date: 20250113
  Transmission Date: 20250409
  Serious: Yes (Hospitalization)
  Sender: JOHNSON AND JOHNSON
  Company Number: US-JNJFOC-20240962976

PATIENT
  Age: 66 Year
  Sex: Female
  Weight: 56.2 kg

DRUGS (2)
  1. RYBREVANT [Suspect]
     Active Substance: AMIVANTAMAB-VMJW
     Indication: Lung adenocarcinoma
     Route: 042
     Dates: start: 20240919
  2. LAZCLUZE [Suspect]
     Active Substance: LAZERTINIB
     Indication: Lung adenocarcinoma
     Route: 048
     Dates: start: 20240917

REACTIONS (2)
  - Hypersensitivity [Recovered/Resolved]
  - Product dose omission issue [Unknown]

NARRATIVE: CASE EVENT DATE: 20240919
